FAERS Safety Report 4639159-X (Version None)
Quarter: 2005Q2

REPORT INFORMATION
  Report Type: 
  Country: None (occurrence: None)
  Receive Date: 20050418
  Receipt Date: 20050407
  Transmission Date: 20051028
  Serious: Yes (Death, Hospitalization)
  Sender: FDA-Public Use
  Company Number: 200510244BFR

PATIENT
  Age: 41 Year
  Sex: Female
  Weight: 52 kg

DRUGS (5)
  1. CIPROFLOXACIN HCL [Suspect]
     Indication: URINARY TRACT INFECTION
     Dosage: 500 MG, QD, ORAL
     Route: 048
     Dates: start: 20050307, end: 20050308
  2. GLUCOPHAGE [Concomitant]
  3. DIFFU K [Concomitant]
  4. TRAMADOL HCL [Concomitant]
  5. LASILIX [Concomitant]

REACTIONS (6)
  - ACUTE RESPIRATORY DISTRESS SYNDROME [None]
  - BLOOD PH INCREASED [None]
  - BUNDLE BRANCH BLOCK RIGHT [None]
  - CONVULSION [None]
  - ELECTROENCEPHALOGRAM ABNORMAL [None]
  - SEPTIC SHOCK [None]
